FAERS Safety Report 17446592 (Version 3)
Quarter: 2020Q2

REPORT INFORMATION
  Report Type: Spontaneous
  Country: US (occurrence: US)
  Receive Date: 20200221
  Receipt Date: 20200408
  Transmission Date: 20200713
  Serious: Yes (Death, Other)
  Sender: FDA-Public Use
  Company Number: US-MYLANLABS-2020M1018674

PATIENT
  Age: 54 Year
  Sex: Female

DRUGS (1)
  1. ALPRAZOLAM TABLETS, USP [Suspect]
     Active Substance: ALPRAZOLAM
     Indication: ANXIETY
     Dosage: 1 DOSAGE FORM, TID (MULTIPLE MONTHS THRU SUMMER/FALL 2019)
     Dates: start: 2019

REACTIONS (2)
  - Recalled product administered [Unknown]
  - Death [Fatal]
